FAERS Safety Report 4317820-4 (Version None)
Quarter: 2004Q1

REPORT INFORMATION
  Report Type: 
  Country: None (occurrence: None)
  Receive Date: 20040312
  Receipt Date: 20040309
  Transmission Date: 20041129
  Serious: No
  Sender: FDA-Public Use
  Company Number: 2004201479US

PATIENT
  Sex: Female

DRUGS (2)
  1. CELEBREX [Suspect]
     Dosage: 200 MG, BID
  2. MULTIPLE MEDICATIONS() [Suspect]

REACTIONS (4)
  - COMA [None]
  - HEMIPLEGIA [None]
  - IATROGENIC INJURY [None]
  - REFLEX SYMPATHETIC DYSTROPHY [None]
